FAERS Safety Report 9233504 (Version 1)
Quarter: 2013Q2

REPORT INFORMATION
  Report Type: Report from Study
  Country: CA (occurrence: CA)
  Receive Date: 20130416
  Receipt Date: 20130416
  Transmission Date: 20140414
  Serious: Yes (Other)
  Sender: FDA-Public Use
  Company Number: CA-JNJFOC-20130407206

PATIENT
  Age: 33 Year
  Sex: Female
  Weight: 69 kg

DRUGS (6)
  1. REMICADE [Suspect]
     Indication: COLITIS ULCERATIVE
     Route: 042
  2. REMICADE [Suspect]
     Indication: ANKYLOSING SPONDYLITIS
     Route: 042
  3. PANTOLOC [Concomitant]
     Route: 065
  4. SALOFALK [Concomitant]
     Route: 065
  5. STATEX [Concomitant]
     Route: 065
  6. TYLENOL ARTHRITIS [Concomitant]
     Route: 065

REACTIONS (2)
  - Ankylosing spondylitis [Not Recovered/Not Resolved]
  - Uveitis [Not Recovered/Not Resolved]
